FAERS Safety Report 16986761 (Version 2)
Quarter: 2019Q4

REPORT INFORMATION
  Report Type: Not Available
  Country: US (occurrence: US)
  Receive Date: 20191101
  Receipt Date: 20191108
  Transmission Date: 20200122
  Serious: No
  Sender: FDA-Public Use
  Company Number: US-NEUROCRINE BIOSCIENCES INC.-2019NBI03176

PATIENT
  Sex: Female

DRUGS (2)
  1. INGREZZA [Suspect]
     Active Substance: VALBENAZINE
     Indication: TARDIVE DYSKINESIA
     Route: 048
     Dates: start: 20180904
  2. INGREZZA [Suspect]
     Active Substance: VALBENAZINE
     Route: 048
     Dates: start: 20190409, end: 20191011

REACTIONS (9)
  - Restlessness [Unknown]
  - Dyskinesia [Unknown]
  - Fatigue [Unknown]
  - Headache [Unknown]
  - Depressed mood [Unknown]
  - Tremor [Unknown]
  - Anxiety [Unknown]
  - Bruxism [Unknown]
  - Tension [Unknown]
